FAERS Safety Report 9383472 (Version 1)
Quarter: 2013Q3

REPORT INFORMATION
  Report Type: Spontaneous
  Country: FR (occurrence: FR)
  Receive Date: 20130704
  Receipt Date: 20130704
  Transmission Date: 20140515
  Serious: Yes (Other)
  Sender: FDA-Public Use
  Company Number: FR-PFIZER INC-2013196294

PATIENT
  Age: 33 Year
  Sex: Male

DRUGS (2)
  1. LYRICA [Suspect]
     Dosage: 75 MG IN MORNING AND 100 MG IN EVENING
     Dates: start: 2013, end: 20130626
  2. MORPHINE [Concomitant]

REACTIONS (2)
  - Intervertebral disc protrusion [Unknown]
  - Hepatic enzyme increased [Unknown]
